FAERS Safety Report 11778325 (Version 2)
Quarter: 2016Q1

REPORT INFORMATION
  Report Type: Spontaneous
  Country: US (occurrence: US)
  Receive Date: 20151125
  Receipt Date: 20160216
  Transmission Date: 20160525
  Serious: No
  Sender: FDA-Public Use
  Company Number: US-GLAXOSMITHKLINE-US2015GSK162763

PATIENT
  Sex: Female

DRUGS (1)
  1. TANZEUM [Suspect]
     Active Substance: ALBIGLUTIDE
     Indication: TYPE 2 DIABETES MELLITUS
     Dosage: 30 MG, WE
     Dates: start: 201509

REACTIONS (3)
  - Product quality issue [Unknown]
  - Drug dose omission [Unknown]
  - Constipation [Unknown]
